FAERS Safety Report 12353518 (Version 8)
Quarter: 2022Q1

REPORT INFORMATION
  Report Type: Spontaneous
  Country: PL (occurrence: PL)
  Receive Date: 20160511
  Receipt Date: 20220127
  Transmission Date: 20220423
  Serious: Yes (Other)
  Sender: FDA-Public Use
  Company Number: PHHY2016PL062339

PATIENT
  Age: 63 Year
  Sex: Male
  Weight: 92 kg

DRUGS (8)
  1. AMLODIPINE [Interacting]
     Active Substance: AMLODIPINE BESYLATE
     Indication: Type V hyperlipidaemia
     Dosage: 5 MG, QD
     Route: 048
  2. AMLODIPINE [Interacting]
     Active Substance: AMLODIPINE BESYLATE
     Indication: Hypertension
  3. INDAPAMIDE [Suspect]
     Active Substance: INDAPAMIDE
     Indication: Hypertension
     Dosage: 1.5 MG, QD
     Route: 065
  4. SIMVASTATIN [Interacting]
     Active Substance: SIMVASTATIN
     Indication: Type V hyperlipidaemia
     Dosage: 20 MG, QD
     Route: 048
  5. SIMVASTATIN [Interacting]
     Active Substance: SIMVASTATIN
     Indication: Hypertension
  6. SIMVASTATIN [Interacting]
     Active Substance: SIMVASTATIN
     Indication: Type IIb hyperlipidaemia
  7. TRANDOLAPRIL [Interacting]
     Active Substance: TRANDOLAPRIL
     Indication: Hypertension
     Dosage: 2 MG, QD
     Route: 065
  8. PERINDOPRIL ARGININE [Interacting]
     Active Substance: PERINDOPRIL ARGININE
     Indication: Hypertension
     Dosage: 10 MG, QD
     Route: 048

REACTIONS (11)
  - Muscular weakness [Recovered/Resolved]
  - Coordination abnormal [Recovered/Resolved]
  - Depression [Recovered/Resolved]
  - Dizziness [Recovered/Resolved]
  - Myalgia [Recovered/Resolved]
  - Performance status decreased [Recovered/Resolved]
  - Fatigue [Recovered/Resolved]
  - Drug interaction [Unknown]
  - Motor dysfunction [Recovered/Resolved]
  - Feeling abnormal [Recovered/Resolved]
  - Confusional state [Recovered/Resolved]

NARRATIVE: CASE EVENT DATE: 20150101
